FAERS Safety Report 6598779-6 (Version None)
Quarter: 2010Q1

REPORT INFORMATION
  Report Type: 
  Country: None (occurrence: None)
  Receive Date: 20100217
  Receipt Date: 20100127
  Transmission Date: 20100710
  Serious: Yes (Hospitalization)
  Sender: FDA-Public Use
  Company Number: 2009AC000145

PATIENT
  Age: 62 Year
  Sex: Male
  Weight: 84.8226 kg

DRUGS (39)
  1. DIGOXIN [Suspect]
     Dosage: 0.25 MG; QD; PO
     Route: 048
     Dates: start: 20060201, end: 20070401
  2. AMOXICILLIN [Concomitant]
  3. WARFARIN SODIUM [Concomitant]
  4. METOPROLOL TARTRATE [Concomitant]
  5. LISINOPRIL [Concomitant]
  6. HYDROCODONE BITARTRATE AND ACETAMINOPHEN [Concomitant]
  7. SIMVASTATIN [Concomitant]
  8. CITALOPRAM HYDROBROMIDE [Concomitant]
  9. LOVENOX [Concomitant]
  10. COTRIM [Concomitant]
  11. METRONIDAZOL [Concomitant]
  12. CLONAZEPAM [Concomitant]
  13. ROPINIROLE [Concomitant]
  14. ALPRAZOLAM [Concomitant]
  15. NASONEX [Concomitant]
  16. TOPROL-XL [Concomitant]
  17. SERTRALINE HCL [Concomitant]
  18. TRIMOX [Concomitant]
  19. NIFEREX [Concomitant]
  20. MAVIK [Concomitant]
  21. DOVENOX [Concomitant]
  22. AMBIEN [Concomitant]
  23. ACTAMINOPHEN [Concomitant]
  24. CRESTOR [Concomitant]
  25. ZOCOR [Concomitant]
  26. WARFARIN SODIUM [Concomitant]
  27. LISINOPRIL [Concomitant]
  28. METOPROLOL TARTRATE [Concomitant]
  29. ASPIRIN [Concomitant]
  30. FISH OIL [Concomitant]
  31. TYLENOL-500 [Concomitant]
  32. BENADRYL [Concomitant]
  33. LORTAB [Concomitant]
  34. BABY ASPIRIN [Concomitant]
  35. LOTRIMIN [Concomitant]
  36. ALPRAZOLAM [Concomitant]
  37. TRILYTE [Concomitant]
  38. ALBUTEROL [Concomitant]
  39. ACETAMINOPHEN AND CODEINE PHOSPHATE [Concomitant]

REACTIONS (28)
  - ANAEMIA [None]
  - ARTERIOSCLEROSIS CORONARY ARTERY [None]
  - ATRIAL FIBRILLATION [None]
  - BACK PAIN [None]
  - BLOOD PRESSURE INCREASED [None]
  - BRADYCARDIA [None]
  - CARDIAC DISORDER [None]
  - COAGULOPATHY [None]
  - COGNITIVE DISORDER [None]
  - CONDITION AGGRAVATED [None]
  - CONJUNCTIVAL HAEMORRHAGE [None]
  - DECREASED ACTIVITY [None]
  - DYSPNOEA EXERTIONAL [None]
  - ERYTHEMA [None]
  - FATIGUE [None]
  - HYPERLIPIDAEMIA [None]
  - INSOMNIA [None]
  - MEMORY IMPAIRMENT [None]
  - MITRAL VALVE INCOMPETENCE [None]
  - MITRAL VALVE PROLAPSE [None]
  - MULTIPLE INJURIES [None]
  - MUSCULOSKELETAL PAIN [None]
  - MYOCARDIAL ISCHAEMIA [None]
  - OBESITY [None]
  - OEDEMA PERIPHERAL [None]
  - PAIN [None]
  - PARAESTHESIA [None]
  - VERTIGO [None]
